FAERS Safety Report 21307951 (Version 1)
Quarter: 2022Q3

REPORT INFORMATION
  Report Type: Spontaneous
  Country: US (occurrence: None)
  Receive Date: 20220907
  Receipt Date: 20220907
  Transmission Date: 20221027
  Serious: Yes (Other)
  Sender: FDA-Public Use
  Company Number: None

PATIENT
  Sex: Male

DRUGS (1)
  1. VILAZODONE HYDROCHLORIDE [Suspect]
     Active Substance: VILAZODONE HYDROCHLORIDE

REACTIONS (8)
  - Migraine [None]
  - Influenza like illness [None]
  - Blood pressure increased [None]
  - Panic attack [None]
  - Condition aggravated [None]
  - Anxiety [None]
  - Depression [None]
  - Irritability [None]
